FAERS Safety Report 7623910-0 (Version None)
Quarter: 2011Q3

REPORT INFORMATION
  Report Type: 
  Country: None (occurrence: None)
  Receive Date: 20110720
  Receipt Date: 20110715
  Transmission Date: 20111222
  Serious: Yes (Other)
  Sender: FDA-Public Use
  Company Number: US-PFIZER INC-2011101259

PATIENT
  Sex: Male

DRUGS (2)
  1. RANITIDINE [Concomitant]
     Indication: ULCER
     Dosage: UNK
     Dates: start: 19980101, end: 20090101
  2. CHANTIX [Suspect]
     Indication: SMOKING CESSATION THERAPY
     Dosage: UNK
     Dates: start: 20070601, end: 20080101

REACTIONS (6)
  - AGGRESSION [None]
  - AMNESIA [None]
  - DEPRESSION [None]
  - ANGER [None]
  - SUICIDAL IDEATION [None]
  - ANXIETY [None]
